FAERS Safety Report 5912465-4 (Version None)
Quarter: 2008Q4

REPORT INFORMATION
  Report Type: 
  Country: None (occurrence: None)
  Receive Date: 20081003
  Receipt Date: 20080922
  Transmission Date: 20090506
  Serious: Yes (Other)
  Sender: FDA-Public Use
  Company Number: 08-001524

PATIENT
  Sex: Male

DRUGS (1)
  1. DORYX [Suspect]

REACTIONS (4)
  - CEREBROVASCULAR ACCIDENT [None]
  - MIGRAINE [None]
  - SYNCOPE [None]
  - VISION BLURRED [None]
